FAERS Safety Report 22389978 (Version 1)
Quarter: 2023Q2

REPORT INFORMATION
  Report Type: Spontaneous
  Country: CA (occurrence: CA)
  Receive Date: 20230531
  Receipt Date: 20230531
  Transmission Date: 20230721
  Serious: Yes (Hospitalization)
  Sender: FDA-Public Use
  Company Number: None

PATIENT

DRUGS (8)
  1. SODIUM CHLORIDE [Suspect]
     Active Substance: SODIUM CHLORIDE
     Indication: Product used for unknown indication
     Dosage: 100 MILLILITER, 1 EVERY 1 HOURS, 20.0 MINUTES, INFUSION
     Route: 042
  2. SODIUM CHLORIDE [Suspect]
     Active Substance: SODIUM CHLORIDE
     Dosage: 150 MILLILITER, 20.0 MINUTES, INFUSION
     Route: 065
  3. CLOZAPINE [Suspect]
     Active Substance: CLOZAPINE
     Indication: Product used for unknown indication
     Dosage: 400 MILLIGRAM, 1 EVERY 1 DAYS
     Route: 065
  4. PALIPERIDONE [Suspect]
     Active Substance: PALIPERIDONE
     Indication: Product used for unknown indication
     Dosage: 350 MILLIGRAM, 1 EVERY 3 MONTHS
     Route: 065
  5. OLANZAPINE [Suspect]
     Active Substance: OLANZAPINE
     Indication: Product used for unknown indication
     Dosage: 10 MILLIGRAM, 1 EVERY 1 DAYS
     Route: 065
  6. OLANZAPINE [Suspect]
     Active Substance: OLANZAPINE
     Dosage: 5 MILLIGRAM, 1 EVERY 1 DAYS
     Route: 065
  7. OLANZAPINE [Suspect]
     Active Substance: OLANZAPINE
     Dosage: 15 MILLIGRAM, 1 EVERY 1 DAYS
     Route: 065
  8. ATROPINE [Concomitant]
     Active Substance: ATROPINE
     Indication: Product used for unknown indication
     Dosage: 1 EVERY 1 DAYS,
     Route: 060

REACTIONS (8)
  - Confusional state [Unknown]
  - Hyperhidrosis [Unknown]
  - Pain [Unknown]
  - Rhabdomyolysis [Unknown]
  - Tachycardia [Unknown]
  - Tremor [Unknown]
  - Blood sodium increased [Unknown]
  - Product administration error [Unknown]
